FAERS Safety Report 6932955-5 (Version None)
Quarter: 2010Q3

REPORT INFORMATION
  Report Type: 
  Country: None (occurrence: None)
  Receive Date: 20100817
  Receipt Date: 20100802
  Transmission Date: 20110219
  Serious: Yes (Hospitalization)
  Sender: FDA-Public Use
  Company Number: A-US2010-38760

PATIENT
  Age: 77 Year
  Sex: Female

DRUGS (2)
  1. TRACLEER [Suspect]
     Indication: PULMONARY ARTERIAL HYPERTENSION
     Dosage: ORAL
     Route: 048
     Dates: start: 20091021
  2. REVATIO [Concomitant]

REACTIONS (4)
  - APPENDICECTOMY [None]
  - COLOSTOMY [None]
  - DIVERTICULITIS [None]
  - OOPHORECTOMY BILATERAL [None]
